FAERS Safety Report 7906834-0 (Version None)
Quarter: 2011Q4

REPORT INFORMATION
  Report Type: 
  Country: None (occurrence: None)
  Receive Date: 20111110
  Receipt Date: 20111107
  Transmission Date: 20120403
  Serious: Yes (Life-Threatening, Hospitalization)
  Sender: FDA-Public Use
  Company Number: CA-ASTRAZENECA-2011SE67286

PATIENT
  Age: 16 Year
  Sex: Female
  Weight: 60 kg

DRUGS (3)
  1. STRATTERA [Suspect]
     Route: 048
  2. SEROQUEL [Suspect]
     Route: 048
  3. RITALIN [Suspect]
     Route: 065

REACTIONS (7)
  - BONE MARROW FAILURE [None]
  - VIRAL INFECTION [None]
  - ECCHYMOSIS [None]
  - FATIGUE [None]
  - PETECHIAE [None]
  - BACTERIAL INFECTION [None]
  - HAEMOGLOBIN DECREASED [None]
